FAERS Safety Report 8389805-2 (Version None)
Quarter: 2012Q2

REPORT INFORMATION
  Report Type: 
  Country: None (occurrence: None)
  Receive Date: 20120529
  Receipt Date: 20120525
  Transmission Date: 20120825
  Serious: No
  Sender: FDA-Public Use
  Company Number: PHHY2011AU116267

PATIENT
  Sex: Female

DRUGS (2)
  1. ZOLEDRONOC ACID [Suspect]
     Dates: start: 20110929
  2. ZOLEDRONOC ACID [Suspect]
     Dates: start: 20100519

REACTIONS (3)
  - IMPAIRED HEALING [None]
  - FALL [None]
  - UPPER LIMB FRACTURE [None]
